FAERS Safety Report 9468656 (Version 3)
Quarter: 2013Q3

REPORT INFORMATION
  Report Type: Spontaneous
  Country: US (occurrence: US)
  Receive Date: 20130821
  Receipt Date: 20130829
  Transmission Date: 20140515
  Serious: Yes (Other)
  Sender: FDA-Public Use
  Company Number: US-PFIZER INC-2013230649

PATIENT
  Age: 67 Year
  Sex: Male
  Weight: 96.15 kg

DRUGS (7)
  1. LYRICA [Suspect]
     Indication: PAIN
     Dosage: 100 MG, 3X/DAY
     Route: 048
  2. LYRICA [Suspect]
     Indication: FIBROMYALGIA
  3. LYRICA [Suspect]
     Indication: DIABETIC NEUROPATHY
  4. LYRICA [Suspect]
     Indication: NEURALGIA
  5. OXYCODONE HYDROCHLORIDE [Suspect]
     Indication: PAIN
     Dosage: 15 MG, 5X/DAY
     Route: 048
  6. GABAPENTIN [Concomitant]
     Dosage: UNK
  7. AMBIEN [Concomitant]
     Indication: SLEEP DISORDER
     Dosage: UNK

REACTIONS (8)
  - Cognitive disorder [Unknown]
  - Gastrointestinal pain [Unknown]
  - Pain [Unknown]
  - Myalgia [Unknown]
  - Abnormal dreams [Unknown]
  - Fear [Unknown]
  - Dizziness [Unknown]
  - Affect lability [Unknown]
